FAERS Safety Report 8068184-4 (Version None)
Quarter: 2012Q1

REPORT INFORMATION
  Report Type: 
  Country: None (occurrence: None)
  Receive Date: 20120124
  Receipt Date: 20110929
  Transmission Date: 20120608
  Serious: No
  Sender: FDA-Public Use
  Company Number: US-AMGEN-USASP2011050445

PATIENT
  Age: 70 Year
  Sex: Female
  Weight: 49.4 kg

DRUGS (1)
  1. PROLIA [Suspect]
     Indication: OSTEOPOROSIS POSTMENOPAUSAL
     Dosage: 60 MG, Q6MO
     Dates: start: 20110301, end: 20110907

REACTIONS (6)
  - ABNORMAL LOSS OF WEIGHT [None]
  - ABDOMINAL PAIN UPPER [None]
  - NAUSEA [None]
  - BACK PAIN [None]
  - DECREASED ACTIVITY [None]
  - MALAISE [None]
